FAERS Safety Report 10449265 (Version 1)
Quarter: 2014Q3

REPORT INFORMATION
  Report Type: Spontaneous
  Country: US (occurrence: US)
  Receive Date: 20140912
  Receipt Date: 20140912
  Transmission Date: 20150326
  Serious: Yes (Hospitalization, Other)
  Sender: FDA-Public Use
  Company Number: US-SUN PHARMACEUTICAL INDUSTRIES LTD-2014SUN02007

PATIENT
  Age: 62 Year
  Sex: Female

DRUGS (4)
  1. CARBIDOPA + LEVODOPA ER TABS 50MG/200MG [Suspect]
     Active Substance: CARBIDOPA\LEVODOPA
     Indication: PARKINSON^S DISEASE
     Route: 065
  2. QUETIAPINE [Concomitant]
     Active Substance: QUETIAPINE
     Indication: PRODUCT USED FOR UNKNOWN INDICATION
  3. LORAZEPAM. [Concomitant]
     Active Substance: LORAZEPAM
     Indication: PRODUCT USED FOR UNKNOWN INDICATION
  4. SERTRALINE [Concomitant]
     Active Substance: SERTRALINE HYDROCHLORIDE
     Indication: PRODUCT USED FOR UNKNOWN INDICATION

REACTIONS (14)
  - Anhedonia [Recovering/Resolving]
  - Aggression [Recovering/Resolving]
  - Mania [Recovering/Resolving]
  - Hallucination [Recovering/Resolving]
  - Dyskinesia [Recovering/Resolving]
  - Anxiety [Recovering/Resolving]
  - Impatience [Recovering/Resolving]
  - Suicidal ideation [Recovering/Resolving]
  - Impulsive behaviour [Recovering/Resolving]
  - Dopamine dysregulation syndrome [Recovering/Resolving]
  - Irritability [Recovering/Resolving]
  - Dysphoria [Recovering/Resolving]
  - Panic attack [Recovering/Resolving]
  - Stereotypy [Recovering/Resolving]
